FAERS Safety Report 17621089 (Version 1)
Quarter: 2020Q2

REPORT INFORMATION
  Report Type: Spontaneous
  Country: FR (occurrence: FR)
  Receive Date: 20200403
  Receipt Date: 20200403
  Transmission Date: 20200713
  Serious: Yes (Life-Threatening, Hospitalization)
  Sender: FDA-Public Use
  Company Number: FR-TEVA-2020-FR-1217610

PATIENT
  Age: 28 Year
  Sex: Male

DRUGS (4)
  1. SERETIDE [Concomitant]
     Active Substance: FLUTICASONE PROPIONATE\SALMETEROL XINAFOATE
  2. SALBUTAMOL [Concomitant]
     Active Substance: ALBUTEROL
  3. AMOXICILLINE [Concomitant]
     Active Substance: AMOXICILLIN
  4. IBUPROFENE [Suspect]
     Active Substance: IBUPROFEN
     Indication: INFLUENZA LIKE ILLNESS
     Route: 048
     Dates: start: 20200129, end: 20200201

REACTIONS (2)
  - Pneumonia [Not Recovered/Not Resolved]
  - Superinfection [Not Recovered/Not Resolved]

NARRATIVE: CASE EVENT DATE: 20200201
